FAERS Safety Report 14852663 (Version 1)
Quarter: 2018Q2

REPORT INFORMATION
  Report Type: Report from Study
  Country: MX (occurrence: MX)
  Receive Date: 20180507
  Receipt Date: 20180507
  Transmission Date: 20180711
  Serious: Yes (Hospitalization)
  Sender: FDA-Public Use
  Company Number: MX-TEVA-2018-MX-889906

PATIENT
  Age: 41 Year
  Sex: Male
  Weight: 90 kg

DRUGS (5)
  1. CEFTRIAXONE. [Concomitant]
     Active Substance: CEFTRIAXONE
     Indication: ANTIBIOTIC THERAPY
     Route: 065
  2. LEVOFLOXACIN. [Concomitant]
     Active Substance: LEVOFLOXACIN
     Indication: ANTIBIOTIC THERAPY
     Route: 065
  3. VANCOMYCIN [Suspect]
     Active Substance: VANCOMYCIN
     Indication: ANTIBIOTIC THERAPY
     Route: 065
  4. AMPICILIN [Concomitant]
     Active Substance: AMPICILLIN
     Indication: ANTIBIOTIC THERAPY
     Route: 065
  5. AMOXICILIN CLAVULANATE [Concomitant]
     Indication: ANTIBIOTIC THERAPY
     Route: 065

REACTIONS (1)
  - Acute kidney injury [Recovering/Resolving]
